FAERS Safety Report 15133191 (Version 12)
Quarter: 2020Q1

REPORT INFORMATION
  Report Type: Spontaneous
  Country: DE (occurrence: DE)
  Receive Date: 20180712
  Receipt Date: 20200204
  Transmission Date: 20200409
  Serious: Yes (Hospitalization, Other)
  Sender: FDA-Public Use
  Company Number: DE-AUROBINDO-AUR-APL-2018-031337

PATIENT
  Age: 48 Year
  Sex: Male
  Weight: 76 kg

DRUGS (30)
  1. FOLINIC ACID [Suspect]
     Active Substance: LEUCOVORIN
     Indication: COLORECTAL CANCER METASTATIC
     Dosage: 780 MILLIGRAM
     Route: 065
     Dates: start: 20180516, end: 20181106
  2. FLUOROURACIL. [Suspect]
     Active Substance: FLUOROURACIL
     Dosage: 4750 MILLIGRAM
     Route: 042
     Dates: start: 20190226, end: 20190312
  3. FLUOROURACIL. [Suspect]
     Active Substance: FLUOROURACIL
     Dosage: 2400 MILLIGRAM
     Route: 042
     Dates: start: 20190326
  4. MONO EMBOLEX [Concomitant]
     Active Substance: CERTOPARIN SODIUM
     Dosage: 3000 INTERNATIONAL UNIT, ONCE A DAY
     Route: 058
     Dates: start: 20180412
  5. GLANDOMED [Concomitant]
     Indication: PROPHYLAXIS
     Dosage: 40 MILLILITER, ONCE A DAY, 20 ML, BID
     Route: 048
     Dates: start: 20180516
  6. FLUOROURACIL. [Suspect]
     Active Substance: FLUOROURACIL
     Dosage: 400 MILLIGRAM
     Route: 040
     Dates: start: 20190326
  7. FLUOROURACIL. [Suspect]
     Active Substance: FLUOROURACIL
     Dosage: 800 MILLIGRAM
     Route: 040
     Dates: start: 20190806
  8. VECTIBIX [Suspect]
     Active Substance: PANITUMUMAB
     Dosage: 6 MILLIGRAM
     Route: 042
     Dates: start: 20190326
  9. DOXY M [Concomitant]
     Indication: PROPHYLAXIS
     Dosage: 100 MILLIGRAM, ONCE A DAY
     Route: 048
     Dates: start: 20180516
  10. FOLINIC ACID [Suspect]
     Active Substance: LEUCOVORIN
     Dosage: 790 MILLIGRAM
     Route: 065
     Dates: start: 20190226, end: 20190312
  11. FLUOROURACIL. [Suspect]
     Active Substance: FLUOROURACIL
     Indication: COLORECTAL CANCER METASTATIC
     Dosage: 800 MILLIGRAM
     Route: 040
     Dates: start: 20180516, end: 20190312
  12. MACROGOL [Concomitant]
     Active Substance: POLYETHYLENE GLYCOLS
     Dosage: 20 MILLILITER, TWO TIMES A DAY
     Route: 048
     Dates: start: 20180516
  13. VITAMIN K [Concomitant]
     Active Substance: PHYTONADIONE
     Indication: PROPHYLAXIS
     Dosage: UNK, AS NECESSARY
     Route: 061
     Dates: start: 20180516
  14. OXALIPLATIN. [Suspect]
     Active Substance: OXALIPLATIN
     Dosage: 85 MILLIGRAM
     Route: 065
     Dates: start: 20190326
  15. FLUOROURACIL. [Suspect]
     Active Substance: FLUOROURACIL
     Dosage: 800 MILLIGRAM
     Route: 040
     Dates: start: 20190723
  16. FOLINIC ACID [Suspect]
     Active Substance: LEUCOVORIN
     Dosage: 780 MILLIGRAM
     Route: 065
     Dates: start: 20180516, end: 20190312
  17. OXALIPLATIN. [Suspect]
     Active Substance: OXALIPLATIN
     Dosage: 135 MILLIGRAM
     Route: 065
     Dates: start: 20190226, end: 20190312
  18. OXALIPLATIN. [Suspect]
     Active Substance: OXALIPLATIN
     Dosage: 135 MILLIGRAM
     Route: 065
     Dates: start: 20190723
  19. FOLINIC ACID [Suspect]
     Active Substance: LEUCOVORIN
     Dosage: 790 MILLIGRAM
     Route: 065
     Dates: start: 20190723
  20. VECTIBIX [Suspect]
     Active Substance: PANITUMUMAB
     Dosage: 480 MILLIGRAM
     Route: 042
     Dates: start: 20190226
  21. FERROSANOL [Concomitant]
     Active Substance: FERROUS GLUCONATE
     Dosage: 100 MILLIGRAM, ONCE A DAY
     Route: 048
     Dates: start: 20180514
  22. PLIAZON [Concomitant]
     Indication: PROPHYLAXIS
     Dosage: UNK, AS NECESSARY
     Route: 061
     Dates: start: 20180516
  23. FOLINIC ACID [Suspect]
     Active Substance: LEUCOVORIN
     Dosage: 400 MILLIGRAM
     Route: 065
     Dates: start: 20190326
  24. OXALIPLATIN. [Suspect]
     Active Substance: OXALIPLATIN
     Indication: COLORECTAL CANCER METASTATIC
     Dosage: 165 MILLIGRAM
     Route: 065
     Dates: start: 20180516, end: 20180814
  25. MONO EMBOLEX [Concomitant]
     Active Substance: CERTOPARIN SODIUM
     Indication: PROPHYLAXIS
     Dosage: 3000 INTERNATIONAL UNIT, ONCE A DAY
     Route: 058
     Dates: start: 20180516
  26. FLUOROURACIL. [Suspect]
     Active Substance: FLUOROURACIL
     Dosage: 4650 MILLIGRAM
     Route: 042
     Dates: start: 20180516, end: 20181106
  27. VECTIBIX [Suspect]
     Active Substance: PANITUMUMAB
     Indication: COLORECTAL CANCER METASTATIC
     Dosage: 460 MILLIGRAM
     Route: 042
     Dates: start: 20180516
  28. VECTIBIX [Suspect]
     Active Substance: PANITUMUMAB
     Dosage: 480 MILLIGRAM
     Route: 042
     Dates: start: 20190903
  29. FERROSANOL [Concomitant]
     Active Substance: FERROUS GLUCONATE
     Indication: ANAEMIA
     Dosage: 80 MILLIGRAM, 3 TIMES A DAY
     Route: 048
     Dates: start: 20180514
  30. MACROGOL [Concomitant]
     Active Substance: POLYETHYLENE GLYCOLS
     Indication: PROPHYLAXIS
     Dosage: 20 MILLILITER, 3 TIMES A DAY
     Route: 048
     Dates: start: 20180516

REACTIONS (9)
  - Dermatitis acneiform [Recovered/Resolved]
  - Constipation [Recovered/Resolved]
  - Hypocalcaemia [Recovered/Resolved]
  - Lymphocyte count decreased [Recovered/Resolved]
  - Fatigue [Not Recovered/Not Resolved]
  - Hypertension [Recovered/Resolved]
  - Mucosal inflammation [Recovered/Resolved]
  - Epistaxis [Recovered/Resolved]
  - Infection [Recovered/Resolved]

NARRATIVE: CASE EVENT DATE: 20180517
